FAERS Safety Report 9445075 (Version 1)
Quarter: 2013Q3

REPORT INFORMATION
  Report Type: Spontaneous
  Country: DE (occurrence: CA)
  Receive Date: 20130807
  Receipt Date: 20130807
  Transmission Date: 20140515
  Serious: Yes (Disabling)
  Sender: FDA-Public Use
  Company Number: CA-FRI-1000047509

PATIENT
  Age: 69 Year
  Sex: Male

DRUGS (11)
  1. ROFLUMILAST [Suspect]
     Dosage: 500 MCG
     Route: 048
     Dates: start: 20120926
  2. SPIRIVA [Concomitant]
  3. ADVAIR [Concomitant]
     Dosage: 250
  4. SPIRONOLACTONE [Concomitant]
     Dosage: 50 MG
  5. VERAPAMIL [Concomitant]
     Dosage: 360 MG
  6. XARELTO [Concomitant]
     Dosage: 15 MG
     Route: 048
  7. LASIX [Concomitant]
     Dosage: 160 MG
  8. CRESTOR [Concomitant]
     Dosage: 10 MG
  9. ESCITALOPRAM [Concomitant]
     Dosage: 10 MG
  10. WELLBUTRIN [Concomitant]
     Dosage: 150 MG
  11. QUETIAPINE [Concomitant]
     Dosage: 25 MG

REACTIONS (1)
  - Alopecia universalis [Not Recovered/Not Resolved]
